FAERS Safety Report 7605091-2 (Version None)
Quarter: 2011Q3

REPORT INFORMATION
  Report Type: 
  Country: None (occurrence: None)
  Receive Date: 20110713
  Receipt Date: 20100520
  Transmission Date: 20111222
  Serious: Yes (Other)
  Sender: FDA-Public Use
  Company Number: US-BAYER-201022734NA

PATIENT
  Age: 58 Year
  Sex: Female
  Weight: 111 kg

DRUGS (21)
  1. TRASYLOL [Suspect]
     Indication: AORTIC VALVE REPLACEMENT
     Dosage: 50 ML/HOUR
     Route: 042
     Dates: start: 20051110, end: 20051110
  2. GLUCOPHAGE [Concomitant]
     Indication: DIABETES MELLITUS
     Dosage: 1000 MG, BID
     Route: 048
  3. METOPROLOL TARTRATE [Concomitant]
     Dosage: 25 MG, UNK
     Dates: start: 20051110
  4. PANCURONIUM [Concomitant]
     Dosage: UNK
     Route: 042
     Dates: start: 20051110
  5. HEPARIN [Concomitant]
     Dosage: UNK
     Route: 042
     Dates: start: 20051110
  6. LEVOPHED [Concomitant]
     Dosage: UNK
     Route: 042
     Dates: start: 20051110
  7. INSULIN HUMULIN [Concomitant]
     Indication: DIABETES MELLITUS
     Dosage: 15 U, TID
     Route: 058
  8. INSULIN [Concomitant]
     Dosage: UNK
     Route: 042
     Dates: start: 20051110
  9. NITROGLYCERIN [Concomitant]
     Dosage: UNK
     Route: 042
     Dates: start: 20051110
  10. LASIX [Concomitant]
     Dosage: 20 MG, BID
     Route: 048
  11. PROTAMINE SULFATE [Concomitant]
     Dosage: UNK
     Route: 042
     Dates: start: 20051110
  12. MILRINONE [Concomitant]
     Dosage: UNK
     Route: 042
     Dates: start: 20051110
  13. ADVICOR [Concomitant]
     Indication: CARDIAC DISORDER
     Dosage: 500/20 TWO AT BEDTIME
     Route: 048
  14. CARBAMAZEPINE [Concomitant]
     Dosage: 200 MG, TID
     Route: 048
  15. CEFUROXIME [Concomitant]
     Dosage: 1.5 G, UNK
     Route: 042
     Dates: start: 20051110, end: 20051110
  16. TRASYLOL [Suspect]
     Indication: PRODUCT USED FOR UNKNOWN INDICATION
     Dosage: 200 ML, UNK
     Route: 042
     Dates: start: 20051110, end: 20051110
  17. COREG [Concomitant]
     Indication: CARDIAC DISORDER
     Dosage: 12.5 MG, BID
     Route: 048
  18. LANTUS [Concomitant]
     Dosage: 30 U, QD
     Route: 058
  19. VERSED [Concomitant]
     Dosage: UNK
     Route: 042
     Dates: start: 20051110
  20. LISINOPRIL [Concomitant]
     Indication: HYPERTENSION
     Dosage: 10 MG, QD
     Route: 048
  21. ACETYLSALICYLIC ACID SRT [Concomitant]
     Dosage: 81 MG, QD
     Route: 048

REACTIONS (9)
  - RENAL INJURY [None]
  - RENAL FAILURE [None]
  - ANHEDONIA [None]
  - RENAL IMPAIRMENT [None]
  - PAIN [None]
  - INJURY [None]
  - FEAR [None]
  - STRESS [None]
  - ANXIETY [None]
